FAERS Safety Report 5232442-9 (Version None)
Quarter: 2007Q1

REPORT INFORMATION
  Report Type: 
  Country: None (occurrence: None)
  Receive Date: 20070205
  Receipt Date: 20070125
  Transmission Date: 20070707
  Serious: Yes (Other)
  Sender: FDA-Public Use
  Company Number: 2007SP001524

PATIENT
  Sex: Female
  Weight: 55 kg

DRUGS (6)
  1. TEMODAL [Suspect]
     Indication: ASTROCYTOMA
     Dosage: 75 MG/M2; PO
     Route: 048
  2. VALPROATE SODIUM [Suspect]
     Indication: EPILEPSY
     Dosage: 1200 MG; QD;
  3. LISINOPRIL [Concomitant]
  4. RISPERDAL [Concomitant]
  5. DEXAMETHASONE [Concomitant]
  6. RADIATION THERAPY [Concomitant]

REACTIONS (2)
  - LEUKOPENIA [None]
  - TRANSAMINASES INCREASED [None]
